FAERS Safety Report 20388113 (Version 1)
Quarter: 2022Q1

REPORT INFORMATION
  Report Type: Spontaneous
  Country: US (occurrence: US)
  Receive Date: 20220128
  Receipt Date: 20220128
  Transmission Date: 20220423
  Serious: No
  Sender: FDA-Public Use
  Company Number: US-ALLERGAN-2138712US

PATIENT
  Age: 49 Year
  Sex: Female

DRUGS (1)
  1. BOTOX [Suspect]
     Active Substance: ONABOTULINUMTOXINA
     Indication: Migraine
     Dosage: UNK, SINGLE

REACTIONS (3)
  - Spinal disorder [Not Recovered/Not Resolved]
  - Neck pain [Unknown]
  - Muscular weakness [Unknown]
